FAERS Safety Report 26045579 (Version 1)
Quarter: 2025Q4

REPORT INFORMATION
  Report Type: Spontaneous
  Country: US (occurrence: US)
  Receive Date: 20251114
  Receipt Date: 20251114
  Transmission Date: 20260118
  Serious: Yes (Hospitalization)
  Sender: ALEXION PHARMACEUTICALS
  Company Number: US-ASTRAZENECA-202511NAM008239US

PATIENT
  Age: 79 Year
  Sex: Male

DRUGS (2)
  1. BREZTRI [Suspect]
     Active Substance: BUDESONIDE\FORMOTEROL\GLYCOPYRROLATE
     Dosage: UNK
     Route: 065
  2. DUPIXENT [Suspect]
     Active Substance: DUPILUMAB
     Route: 065

REACTIONS (5)
  - Chronic obstructive pulmonary disease [Unknown]
  - Asthma [Unknown]
  - Dizziness [Unknown]
  - Aphonia [Unknown]
  - Drug ineffective [Unknown]
